FAERS Safety Report 4716078-1 (Version None)
Quarter: 2005Q3

REPORT INFORMATION
  Report Type: 
  Country: None (occurrence: None)
  Receive Date: 20050718
  Receipt Date: 20050707
  Transmission Date: 20060218
  Serious: Yes (Hospitalization)
  Sender: FDA-Public Use
  Company Number: FR-JNJFOC-20041202474

PATIENT
  Sex: Female

DRUGS (12)
  1. HALDOL [Suspect]
     Indication: DRUG USE FOR UNKNOWN INDICATION
     Route: 048
  2. SERMION [Suspect]
     Indication: DRUG USE FOR UNKNOWN INDICATION
  3. ENALAPRIL MALEATE [Suspect]
     Indication: DRUG USE FOR UNKNOWN INDICATION
  4. TRIVASTAL [Suspect]
     Indication: DRUG USE FOR UNKNOWN INDICATION
  5. PROPOFOL [Suspect]
  6. PROPOFOL [Suspect]
  7. PROPOFOL [Suspect]
  8. PROPOFOL [Suspect]
  9. PROPOFOL [Suspect]
     Indication: DRUG USE FOR UNKNOWN INDICATION
  10. MONICOR [Concomitant]
  11. TRIAMTERENE AND HYDROCHLOROTHIAZIDE [Concomitant]
  12. TRIAMTERENE AND HYDROCHLOROTHIAZIDE [Concomitant]

REACTIONS (1)
  - PEMPHIGOID [None]
